FAERS Safety Report 8613487 (Version 5)
Quarter: 2014Q2

REPORT INFORMATION
  Report Type: Spontaneous
  Country: US (occurrence: US)
  Receive Date: 20120614
  Receipt Date: 20140522
  Transmission Date: 20141212
  Serious: Yes (Hospitalization)
  Sender: FDA-Public Use
  Company Number: US-ASTRAZENECA-2012SE36138

PATIENT
  Age: 49 Year
  Sex: Male

DRUGS (34)
  1. NEXIUM [Suspect]
     Indication: BARRETT^S OESOPHAGUS
     Route: 048
     Dates: start: 2002, end: 201303
  2. NEXIUM [Suspect]
     Indication: DYSPEPSIA
     Route: 048
     Dates: start: 2002, end: 201303
  3. NEXIUM [Suspect]
     Indication: GASTROOESOPHAGEAL REFLUX DISEASE
     Route: 048
     Dates: start: 2002, end: 201303
  4. NEXIUM [Suspect]
     Indication: BARRETT^S OESOPHAGUS
     Route: 048
     Dates: start: 20021121, end: 2011
  5. NEXIUM [Suspect]
     Indication: DYSPEPSIA
     Route: 048
     Dates: start: 20021121, end: 2011
  6. NEXIUM [Suspect]
     Indication: GASTROOESOPHAGEAL REFLUX DISEASE
     Route: 048
     Dates: start: 20021121, end: 2011
  7. NEXIUM [Suspect]
     Indication: BARRETT^S OESOPHAGUS
     Route: 048
     Dates: start: 20110705
  8. NEXIUM [Suspect]
     Indication: DYSPEPSIA
     Route: 048
     Dates: start: 20110705
  9. NEXIUM [Suspect]
     Indication: GASTROOESOPHAGEAL REFLUX DISEASE
     Route: 048
     Dates: start: 20110705
  10. OMEPRAZOLE [Suspect]
     Indication: BARRETT^S OESOPHAGUS
     Route: 048
     Dates: start: 20110523
  11. OMEPRAZOLE [Suspect]
     Indication: GASTROOESOPHAGEAL REFLUX DISEASE
     Route: 048
     Dates: start: 20110523
  12. OMEPRAZOLE [Suspect]
     Indication: DYSPEPSIA
     Route: 048
     Dates: start: 20110523
  13. OMEPRAZOLE [Suspect]
     Indication: BARRETT^S OESOPHAGUS
     Route: 048
     Dates: start: 201303
  14. OMEPRAZOLE [Suspect]
     Indication: GASTROOESOPHAGEAL REFLUX DISEASE
     Route: 048
     Dates: start: 201303
  15. OMEPRAZOLE [Suspect]
     Indication: DYSPEPSIA
     Route: 048
     Dates: start: 201303
  16. ZANTAC [Concomitant]
     Route: 048
     Dates: start: 20090601
  17. PREVACID [Concomitant]
     Dates: start: 1999, end: 2002
  18. PREVACID [Concomitant]
     Dates: start: 20090601
  19. TUMS [Concomitant]
  20. MYLANTA [Concomitant]
  21. ZYRTEC [Concomitant]
     Indication: HYPERSENSITIVITY
     Dates: start: 20060728
  22. HYDROCODONE [Concomitant]
     Indication: PAIN
  23. PREDNISONE [Concomitant]
     Indication: ASTHMA
  24. NYSTATIN [Concomitant]
     Indication: ASTHMA
  25. EPIPEN [Concomitant]
     Indication: HYPERSENSITIVITY
  26. ADVAIR [Concomitant]
  27. ALBUTEROL [Concomitant]
  28. SINGULAIR [Concomitant]
  29. SINGULAIR [Concomitant]
     Dates: start: 20060626
  30. LIPITOR [Concomitant]
  31. LIPITOR [Concomitant]
     Dates: start: 20110801
  32. MAXAIR [Concomitant]
  33. THEODUR [Concomitant]
  34. FLUTICASONE [Concomitant]
     Dates: start: 20101022

REACTIONS (13)
  - Inguinal hernia [Unknown]
  - Incarcerated hernia [Unknown]
  - Cellulitis [Unknown]
  - Haematoma [Unknown]
  - Osteoporosis [Unknown]
  - Multiple fractures [Unknown]
  - Osteopenia [Unknown]
  - Bone disorder [Unknown]
  - Musculoskeletal pain [Unknown]
  - Back pain [Unknown]
  - Arthritis [Unknown]
  - Lower limb fracture [Unknown]
  - Bursitis [Unknown]
